FAERS Safety Report 9055595 (Version 2)
Quarter: 2013Q3

REPORT INFORMATION
  Report Type: Report from Study
  Country: CA (occurrence: CA)
  Receive Date: 20130206
  Receipt Date: 20130830
  Transmission Date: 20140515
  Serious: Yes (Hospitalization)
  Sender: FDA-Public Use
  Company Number: PHHO2011CA09309

PATIENT
  Age: 65 Year
  Sex: Male
  Weight: 91 kg

DRUGS (18)
  1. PLACEBO [Suspect]
     Indication: CARDIOVASCULAR DISORDER
     Route: 048
     Dates: start: 20090312, end: 20110322
  2. PLACEBO [Suspect]
     Route: 048
     Dates: start: 20110414
  3. HYDROCHLOROTHIAZIDE SANDOZ [Suspect]
  4. RESTORIL [Concomitant]
     Indication: INSOMNIA
     Dosage: 30 MG, QID
     Route: 048
     Dates: start: 199411
  5. PANTOLOC [Concomitant]
     Indication: REFLUX GASTRITIS
     Dosage: 40 MG, QD
     Route: 048
     Dates: start: 2004
  6. AVALIDE [Concomitant]
     Indication: HYPERTENSION
     Dosage: 300/12.5 MG, QD
     Route: 048
     Dates: start: 200807
  7. TENORMIN [Concomitant]
     Indication: HYPERTENSION
     Dosage: 100 MG, QD
     Route: 048
     Dates: start: 199610
  8. COUMADIN [Concomitant]
     Indication: CORONARY ARTERY EMBOLISM
     Route: 048
     Dates: start: 199411
  9. EZETROL [Concomitant]
     Indication: DYSLIPIDAEMIA
     Dosage: 10 MG, QD
     Route: 048
     Dates: start: 2007
  10. LIPITOR [Concomitant]
     Indication: DYSLIPIDAEMIA
     Dosage: 40 MG, QD
     Route: 048
     Dates: start: 200605
  11. FERROUS SULFATE [Concomitant]
     Indication: IRON DEFICIENCY ANAEMIA
     Dosage: 300 MG, QD
     Route: 048
     Dates: start: 2004
  12. LANTUS [Concomitant]
     Indication: DIABETES MELLITUS
     Dosage: 56-0-36-0 SIC
     Route: 042
     Dates: start: 200710, end: 20110321
  13. HUMALOG [Concomitant]
     Indication: DIABETES MELLITUS
     Dosage: 10-12-10-0 SIC
     Route: 042
     Dates: start: 200710, end: 20110321
  14. NORVASC [Concomitant]
     Indication: HYPERTENSION
     Dosage: 10 MG, QD
     Route: 048
     Dates: start: 200901
  15. CARDURA [Concomitant]
     Indication: HYPERTENSION
     Dosage: 2 MG, QID
     Route: 048
     Dates: start: 20090908
  16. GLUCOPHAGE [Concomitant]
     Indication: DIABETES MELLITUS
     Dosage: 500 MG, BID
     Route: 048
     Dates: start: 20100601
  17. TYLENOL [Concomitant]
     Dosage: 500 MG, PRN
     Route: 048
     Dates: start: 20110314
  18. CODEINE [Concomitant]
     Dosage: 30 MG, QID
     Route: 048
     Dates: start: 20110317

REACTIONS (2)
  - Hip fracture [Recovering/Resolving]
  - Syncope [Recovered/Resolved]
